FAERS Safety Report 6784921-0 (Version None)
Quarter: 2010Q2

REPORT INFORMATION
  Report Type: 
  Country: None (occurrence: None)
  Receive Date: 20100622
  Receipt Date: 20100608
  Transmission Date: 20101027
  Serious: Yes (Other)
  Sender: FDA-Public Use
  Company Number: US-SANOFI-AVENTIS-2010SA034048

PATIENT
  Age: 84 Year
  Sex: Female

DRUGS (10)
  1. DRISDOL [Suspect]
     Indication: VITAMIN D DEFICIENCY
     Dosage: DOSE:50000 UNIT(S)
     Route: 065
  2. DRISDOL [Suspect]
     Dosage: DOSE:50000 UNIT(S)
     Route: 065
  3. WARFARIN [Concomitant]
  4. FUROSEMIDE [Concomitant]
  5. DONEPEZIL HCL [Concomitant]
  6. LISINOPRIL [Concomitant]
  7. METOPROLOL TARTRATE [Concomitant]
  8. SIMVASTATIN [Concomitant]
  9. LEVOTHYROXINE SODIUM [Concomitant]
  10. MONTELUKAST [Concomitant]

REACTIONS (6)
  - ACCIDENTAL OVERDOSE [None]
  - DECREASED APPETITE [None]
  - INTERNATIONAL NORMALISED RATIO INCREASED [None]
  - MEDICATION ERROR [None]
  - VITAMIN D INCREASED [None]
  - WEIGHT DECREASED [None]
